FAERS Safety Report 10420864 (Version 1)
Quarter: 2014Q3

REPORT INFORMATION
  Report Type: Spontaneous
  Country: US (occurrence: None)
  Receive Date: 20140819
  Receipt Date: 20140819
  Transmission Date: 20150326
  Serious: Yes (Hospitalization)
  Sender: FDA-Public Use
  Company Number: GTI002410

PATIENT
  Age: 54 Year
  Sex: Female

DRUGS (4)
  1. GAMMAKED [Suspect]
     Active Substance: HUMAN IMMUNOGLOBULIN G
     Indication: CHRONIC INFLAMMATORY DEMYELINATING POLYRADICULONEUROPATHY
     Dates: start: 20140624, end: 20140627
  2. CELEBREX [Concomitant]
     Active Substance: CELECOXIB
  3. ZOLOFT [Concomitant]
     Active Substance: SERTRALINE HYDROCHLORIDE
  4. KLONOPIN [Concomitant]
     Active Substance: CLONAZEPAM

REACTIONS (9)
  - Hepatotoxicity [None]
  - Heart rate increased [None]
  - Intravascular haemolysis [None]
  - Meningitis aseptic [None]
  - Blood pressure increased [None]
  - Renal disorder [None]
  - Haemolytic anaemia [None]
  - Drug-induced liver injury [None]
  - Purpura [None]

NARRATIVE: CASE EVENT DATE: 20140628
